FAERS Safety Report 17151780 (Version 1)
Quarter: 2019Q4

REPORT INFORMATION
  Report Type: Spontaneous
  Country: US (occurrence: US)
  Receive Date: 20191212
  Receipt Date: 20191212
  Transmission Date: 20200122
  Serious: Yes (Death)
  Sender: FDA-Public Use
  Company Number: None

PATIENT
  Age: 78 Year
  Sex: Male

DRUGS (4)
  1. JAKAFI 5 MG [Concomitant]
     Dates: start: 20120505, end: 20170130
  2. MELATONIN 5MG CAP [Concomitant]
     Dates: start: 20120505, end: 20170130
  3. EXJADE [Suspect]
     Active Substance: DEFERASIROX
     Indication: IRON METABOLISM DISORDER
     Route: 048
     Dates: start: 20150915, end: 20170110
  4. JANUVIA [Concomitant]
     Active Substance: SITAGLIPTIN PHOSPHATE
     Dates: start: 20120505, end: 20170130

REACTIONS (1)
  - Death [None]

NARRATIVE: CASE EVENT DATE: 20170130
